FAERS Safety Report 7475546-2 (Version None)
Quarter: 2011Q2

REPORT INFORMATION
  Report Type: 
  Country: None (occurrence: None)
  Receive Date: 20110510
  Receipt Date: 20110510
  Transmission Date: 20111010
  Serious: Yes (Life-Threatening, Hospitalization, Other)
  Sender: FDA-Public Use
  Company Number: None

PATIENT
  Age: 4 Year
  Sex: Male
  Weight: 14.9687 kg

DRUGS (11)
  1. TOBI-NEB [Concomitant]
  2. SINGULAIR [Suspect]
     Indication: HYPERSENSITIVITY
     Dosage: 4MG VIA GTUBE DAILY OTHER
     Route: 050
  3. SINGULAIR [Suspect]
     Indication: ASTHMA
     Dosage: 4MG VIA GTUBE DAILY OTHER
     Route: 050
  4. GTUBE [Concomitant]
  5. FLOURIDE [Concomitant]
  6. CLARITIN [Concomitant]
  7. SILDENAFIL CITRATE [Concomitant]
  8. XOPENEX [Concomitant]
  9. FLOVENT [Concomitant]
  10. ZANTAC [Concomitant]
  11. TRACH [Concomitant]

REACTIONS (6)
  - SELF INJURIOUS BEHAVIOUR [None]
  - AGORAPHOBIA [None]
  - ANXIETY [None]
  - INSOMNIA [None]
  - NIGHTMARE [None]
  - HALLUCINATION [None]
